FAERS Safety Report 9804303 (Version 2)
Quarter: 2014Q1

REPORT INFORMATION
  Report Type: Spontaneous
  Country: RS (occurrence: RS)
  Receive Date: 20140108
  Receipt Date: 20140131
  Transmission Date: 20141002
  Serious: Yes (Death)
  Sender: FDA-Public Use
  Company Number: RS-BRISTOL-MYERS SQUIBB COMPANY-19973882

PATIENT
  Age: 61 Year
  Sex: Male

DRUGS (1)
  1. ERBITUX SOLN FOR INF 5MG/ML [Suspect]
     Indication: HEAD AND NECK CANCER
     Dosage: 1ST WEEK?DOSE REDUCED TO 440MG,1 IN 1 WK:2013-8WEEKS?NO OF COURSE-8.
     Route: 042
     Dates: start: 20131016

REACTIONS (2)
  - Myocardial infarction [Fatal]
  - Body temperature increased [Unknown]
